FAERS Safety Report 21049548 (Version 5)
Quarter: 2022Q3

REPORT INFORMATION
  Report Type: Report from Study
  Country: CN (occurrence: None)
  Receive Date: 20220706
  Receipt Date: 20220809
  Transmission Date: 20221027
  Serious: Yes (Hospitalization)
  Sender: FDA-Public Use
  Company Number: CN-ROCHE-3129525

PATIENT
  Age: 62 Year
  Sex: Male
  Weight: 52 kg

DRUGS (37)
  1. ATEZOLIZUMAB [Suspect]
     Active Substance: ATEZOLIZUMAB
     Indication: Small cell lung cancer extensive stage
     Dosage: DATE OF MOST RECENT DOSE OF ATEZOLIZUMAB PRIOR TO SAE ONSET: 22/JUN/2022
     Route: 041
     Dates: start: 20210423
  2. BEVACIZUMAB [Suspect]
     Active Substance: BEVACIZUMAB
     Indication: Small cell lung cancer extensive stage
     Dosage: DATE OF MOST RECENT DOSE OF BEVACIZUMAB/PLACEBO PRIOR TO SAE ONSET: 22/JUN/2022
     Route: 042
     Dates: start: 20210423
  3. CARBOPLATIN [Suspect]
     Active Substance: CARBOPLATIN
     Indication: Small cell lung cancer extensive stage
     Dosage: DATE OF MOST RECENT DOSE OF CARBOPLATIN PRIOR TO SAE ONSET: 23/JUN/2021
     Route: 042
     Dates: start: 20210423
  4. ETOPOSIDE [Suspect]
     Active Substance: ETOPOSIDE
     Indication: Small cell lung cancer extensive stage
     Dosage: DATE OF MOST RECENT DOSE OF ETOPOSIDE PRIOR TO SAE ONSET: 25/JUN/2021
     Route: 042
     Dates: start: 20210423
  5. TROPISETRON [Concomitant]
     Active Substance: TROPISETRON
     Route: 042
     Dates: start: 20210423, end: 20210426
  6. TROPISETRON [Concomitant]
     Active Substance: TROPISETRON
     Route: 042
     Dates: start: 20210513, end: 20210514
  7. TROPISETRON [Concomitant]
     Active Substance: TROPISETRON
     Route: 050
     Dates: start: 20210515, end: 20210515
  8. TROPISETRON [Concomitant]
     Active Substance: TROPISETRON
     Route: 050
     Dates: start: 20210603, end: 20210606
  9. ILAPRAZOLE [Concomitant]
     Active Substance: ILAPRAZOLE
     Route: 042
     Dates: start: 20210423, end: 20210426
  10. ILAPRAZOLE [Concomitant]
     Active Substance: ILAPRAZOLE
     Route: 042
     Dates: start: 20210513, end: 20220516
  11. ILAPRAZOLE [Concomitant]
     Active Substance: ILAPRAZOLE
     Route: 050
     Dates: start: 20210603, end: 20210606
  12. ILAPRAZOLE [Concomitant]
     Active Substance: ILAPRAZOLE
     Route: 042
     Dates: start: 20210622, end: 20210626
  13. MAGNESIUM ISOGLYCYRRHIZINATE [Concomitant]
     Active Substance: MAGNESIUM ISOGLYCYRRHIZINATE
     Route: 042
     Dates: start: 20210423, end: 20210426
  14. MAGNESIUM ISOGLYCYRRHIZINATE [Concomitant]
     Active Substance: MAGNESIUM ISOGLYCYRRHIZINATE
     Route: 050
     Dates: start: 20210513, end: 20210516
  15. MAGNESIUM ISOGLYCYRRHIZINATE [Concomitant]
     Active Substance: MAGNESIUM ISOGLYCYRRHIZINATE
     Route: 050
     Dates: start: 20210603, end: 20210606
  16. MAGNESIUM ISOGLYCYRRHIZINATE [Concomitant]
     Active Substance: MAGNESIUM ISOGLYCYRRHIZINATE
     Route: 042
     Dates: start: 20210622, end: 20210626
  17. MUCOPOLYSACCHARIDE POLYSULFATE [Concomitant]
     Route: 050
     Dates: start: 20210423, end: 20210426
  18. MUCOPOLYSACCHARIDE POLYSULFATE [Concomitant]
     Route: 050
     Dates: start: 20210513, end: 20210515
  19. MUCOPOLYSACCHARIDE POLYSULFATE [Concomitant]
     Route: 050
     Dates: start: 20210603, end: 20210606
  20. MUCOPOLYSACCHARIDE POLYSULFATE [Concomitant]
     Route: 050
     Dates: start: 20210623, end: 20210626
  21. MUCOPOLYSACCHARIDE POLYSULFATE [Concomitant]
     Route: 050
     Dates: start: 20210714, end: 20210714
  22. ILAPRAZOLE [Concomitant]
     Active Substance: ILAPRAZOLE
     Route: 048
     Dates: start: 20210426, end: 20210502
  23. ILAPRAZOLE [Concomitant]
     Active Substance: ILAPRAZOLE
     Route: 048
     Dates: start: 20210517, end: 20210523
  24. ILAPRAZOLE [Concomitant]
     Active Substance: ILAPRAZOLE
     Route: 048
     Dates: start: 20210607, end: 20210614
  25. ILAPRAZOLE [Concomitant]
     Active Substance: ILAPRAZOLE
     Route: 048
     Dates: start: 20210628, end: 20210704
  26. APREPITANT [Concomitant]
     Active Substance: APREPITANT
     Route: 048
     Dates: start: 20210513, end: 20210516
  27. APREPITANT [Concomitant]
     Active Substance: APREPITANT
     Route: 048
     Dates: start: 20210603, end: 20210606
  28. TROPISETRON HYDROCHLORIDE [Concomitant]
     Active Substance: TROPISETRON HYDROCHLORIDE
     Route: 042
     Dates: start: 20210622, end: 20210626
  29. LEVOTHYROXINE SODIUM [Concomitant]
     Active Substance: LEVOTHYROXINE SODIUM
     Indication: Hypothyroidism
     Route: 048
     Dates: start: 20210603, end: 20210609
  30. LEVOTHYROXINE SODIUM [Concomitant]
     Active Substance: LEVOTHYROXINE SODIUM
     Route: 048
     Dates: start: 20210610, end: 20210621
  31. LEVOTHYROXINE SODIUM [Concomitant]
     Active Substance: LEVOTHYROXINE SODIUM
     Route: 048
     Dates: start: 20210622, end: 20220626
  32. LEVOTHYROXINE SODIUM [Concomitant]
     Active Substance: LEVOTHYROXINE SODIUM
     Route: 048
     Dates: start: 20210627
  33. FOSAPREPITANT DIMEGLUMINE [Concomitant]
     Active Substance: FOSAPREPITANT DIMEGLUMINE
     Route: 042
     Dates: start: 20210623, end: 20210623
  34. MPS [Concomitant]
     Dosage: NEXT DOSE ON 23/JUN/2021
     Dates: start: 20210513, end: 20210515
  35. CODEINE PHOSPHATE AND PLATYCODON TABLETS [Concomitant]
     Indication: Cough
     Route: 048
     Dates: start: 20210824, end: 20210901
  36. CODEINE PHOSPHATE AND PLATYCODON TABLETS [Concomitant]
     Indication: Productive cough
     Route: 048
     Dates: start: 20211217
  37. CODEINE PHOSPHATE AND PLATYCODON TABLETS [Concomitant]
     Route: 048
     Dates: start: 20211217

REACTIONS (2)
  - Intervertebral disc protrusion [Not Recovered/Not Resolved]
  - Lacunar infarction [Not Recovered/Not Resolved]

NARRATIVE: CASE EVENT DATE: 20220628
